FAERS Safety Report 9100843 (Version 1)
Quarter: 2013Q1

REPORT INFORMATION
  Report Type: Spontaneous
  Country: FR (occurrence: FR)
  Receive Date: 20130215
  Receipt Date: 20130215
  Transmission Date: 20140127
  Serious: Yes (Death, Hospitalization)
  Sender: FDA-Public Use
  Company Number: FR-PFIZER INC-2013058411

PATIENT
  Age: 7 Year
  Sex: Female

DRUGS (2)
  1. ADVIL ENFANTS ET NOURRISSONS [Suspect]
     Indication: INFLUENZA
     Dosage: 2 INTAKES IN ONE DAY
  2. DOLIPRANE [Suspect]
     Indication: INFLUENZA
     Dosage: 2 INTAKES IN ONE DAY

REACTIONS (2)
  - Staphylococcal infection [Fatal]
  - Lung disorder [Fatal]
